FAERS Safety Report 5410240-0 (Version None)
Quarter: 2007Q3

REPORT INFORMATION
  Report Type: 
  Country: None (occurrence: None)
  Receive Date: 20070808
  Receipt Date: 20070727
  Transmission Date: 20080115
  Serious: Yes (Hospitalization, Other)
  Sender: FDA-Public Use
  Company Number: 230880K07USA

PATIENT
  Age: 47 Year
  Sex: Female

DRUGS (6)
  1. REBIF [Suspect]
     Indication: MULTIPLE SCLEROSIS
     Dosage: 44 MCG, 3 IN 1 WEEKS, SUBCUTANEOUS
     Route: 058
     Dates: start: 20060717, end: 20070101
  2. NEXIUM [Concomitant]
  3. MORPHINE [Concomitant]
  4. VALIUM [Concomitant]
  5. ASPIRIN [Concomitant]
  6. CRESTOR [Concomitant]

REACTIONS (2)
  - ARTERIAL OCCLUSIVE DISEASE [None]
  - CORONARY ARTERY OCCLUSION [None]
